FAERS Safety Report 7916445-9 (Version None)
Quarter: 2011Q4

REPORT INFORMATION
  Report Type: 
  Country: None (occurrence: None)
  Receive Date: 20111116
  Receipt Date: 20111107
  Transmission Date: 20120403
  Serious: Yes (Hospitalization)
  Sender: FDA-Public Use
  Company Number: DE-UCBSA-033143

PATIENT
  Sex: Female

DRUGS (3)
  1. KEPPRA [Suspect]
  2. LYRICA [Concomitant]
  3. VALPROIC ACID [Concomitant]

REACTIONS (2)
  - HOSPITALISATION [None]
  - IRON DEFICIENCY ANAEMIA [None]
